FAERS Safety Report 22246229 (Version 1)
Quarter: 2023Q2

REPORT INFORMATION
  Report Type: Spontaneous
  Country: CA (occurrence: CA)
  Receive Date: 20230424
  Receipt Date: 20230424
  Transmission Date: 20230722
  Serious: Yes (Death)
  Sender: FDA-Public Use
  Company Number: CA-PFIZER INC-2020273613

PATIENT
  Age: 74 Year
  Sex: Female

DRUGS (3)
  1. IBRANCE [Suspect]
     Active Substance: PALBOCICLIB
     Indication: Breast cancer metastatic
     Dosage: DAILY X 21 DAYS
     Route: 048
     Dates: start: 20181129
  2. LETROZOLE [Concomitant]
     Active Substance: LETROZOLE
     Dosage: 2.5 MG DAILY X 1MONTH
     Route: 048
  3. MICRO-K [Concomitant]
     Active Substance: POTASSIUM CHLORIDE
     Dosage: UNK, 2X/DAY ( FOR 3 DAYS)
     Route: 048

REACTIONS (3)
  - Death [Fatal]
  - Full blood count decreased [Unknown]
  - Malaise [Unknown]

NARRATIVE: CASE EVENT DATE: 20221104
